FAERS Safety Report 7742954-1 (Version None)
Quarter: 2011Q3

REPORT INFORMATION
  Report Type: 
  Country: None (occurrence: None)
  Receive Date: 20110912
  Receipt Date: 20110908
  Transmission Date: 20111222
  Serious: Yes (Hospitalization)
  Sender: FDA-Public Use
  Company Number: GB-ROCHE-632059

PATIENT
  Sex: Male
  Weight: 73 kg

DRUGS (4)
  1. OMEPRAZOLE [Concomitant]
     Route: 048
     Dates: start: 20081210
  2. BEVACIZUMAB [Suspect]
     Indication: COLON CANCER
     Dosage: TEMPORARILY INTERRUPTED. LAST DOSE: 15 APRIL 2009. CURRENT CYCLE NUMBER 7.
     Route: 042
     Dates: start: 20081210
  3. CAPECITABINE [Suspect]
     Indication: COLON CANCER
     Dosage: TEMPORARILY INTERRUPTED. LAST DOSE: 29 APRIL 2009. CURRENT CYCLE NUMBER 7.
     Route: 048
     Dates: start: 20081211
  4. AMLODIPINE [Concomitant]
     Indication: HYPERTENSION
     Route: 048

REACTIONS (2)
  - CALCULUS URETERIC [None]
  - INFECTION [None]
